FAERS Safety Report 6576482-6 (Version None)
Quarter: 2010Q1

REPORT INFORMATION
  Report Type: 
  Country: None (occurrence: None)
  Receive Date: 20100210
  Receipt Date: 20100129
  Transmission Date: 20100710
  Serious: Yes (Death)
  Sender: FDA-Public Use
  Company Number: IN-PFIZER INC-2010012682

PATIENT
  Sex: Male

DRUGS (1)
  1. ERAXIS [Suspect]
     Indication: FUNGAL INFECTION
     Dosage: 100 MG, UNK
     Route: 042

REACTIONS (1)
  - DEATH [None]
